FAERS Safety Report 18247211 (Version 1)
Quarter: 2020Q3

REPORT INFORMATION
  Report Type: Spontaneous
  Country: CH (occurrence: CH)
  Receive Date: 20200909
  Receipt Date: 20200909
  Transmission Date: 20201103
  Serious: Yes (Life-Threatening, Hospitalization)
  Sender: FDA-Public Use
  Company Number: CH-TEVA-2020-CH-1825986

PATIENT
  Age: 38 Year
  Sex: Female
  Weight: 66 kg

DRUGS (12)
  1. SEQUASE [Suspect]
     Active Substance: QUETIAPINE FUMARATE
     Route: 048
     Dates: start: 202005
  2. PIPERACILLIN AND TAZOBACTAM [Suspect]
     Active Substance: PIPERACILLIN SODIUM\TAZOBACTAM SODIUM
     Route: 041
     Dates: start: 20200727, end: 20200806
  3. PANTOZOL [Suspect]
     Active Substance: PANTOPRAZOLE SODIUM
     Route: 065
  4. ACIDUM FOLICUM STREULI [Concomitant]
     Active Substance: FOLIC ACID
     Dates: start: 2018, end: 20200725
  5. TRITTICO [Suspect]
     Active Substance: TRAZODONE HYDROCHLORIDE
     Dosage: INCREASED TO 150 MG PER DAY SHORTLY BEFORE ADMISSION (26?JUL?2020)
     Route: 065
  6. CO?AMOXI [Suspect]
     Active Substance: AMOXICILLIN\CLAVULANATE POTASSIUM
     Route: 041
     Dates: start: 20200717, end: 20200726
  7. BECOZYME [Concomitant]
     Active Substance: VITAMINS
     Dates: start: 202005
  8. DUPHALAC [Concomitant]
     Active Substance: LACTULOSE
     Dates: start: 202005
  9. PALLADON [Concomitant]
     Active Substance: HYDROMORPHONE
     Dosage: 12 MILLIGRAM DAILY;
     Route: 048
     Dates: start: 20200724, end: 20200726
  10. NOVALGIN (METAMIZOLE SODIUM) [Suspect]
     Active Substance: METAMIZOLE SODIUM
     Dosage: IF NECESSARY. EXTERNAL ANAMNESTIC INFORMATION.
     Route: 048
     Dates: start: 20200701, end: 20200724
  11. LAXOBERON [Suspect]
     Active Substance: SODIUM PICOSULFATE
     Route: 065
  12. IMPORTAL [Concomitant]
     Active Substance: LACTITOL
     Dates: start: 202005, end: 20200727

REACTIONS (3)
  - Pancytopenia [Not Recovered/Not Resolved]
  - Agranulocytosis [Recovered/Resolved]
  - Pancytopenia [Recovered/Resolved]

NARRATIVE: CASE EVENT DATE: 201802
